FAERS Safety Report 6426951-4 (Version None)
Quarter: 2009Q4

REPORT INFORMATION
  Report Type: 
  Country: None (occurrence: None)
  Receive Date: 20091103
  Receipt Date: 20091103
  Transmission Date: 20100525
  Serious: Yes (Disabling, Other)
  Sender: FDA-Public Use
  Company Number: None

PATIENT
  Age: 51 Year
  Sex: Female
  Weight: 55.7924 kg

DRUGS (1)
  1. BENGAY MOIST HEAT THERAPY (NO ACTIVE INGREDIENT) [Suspect]
     Indication: DRUG USE FOR UNKNOWN INDICATION
     Dosage: UNSPECIFIED FOR 5 HOURS, TOPICAL
     Route: 061
     Dates: start: 20080921

REACTIONS (10)
  - APPLICATION SITE BURN [None]
  - APPLICATION SITE SWELLING [None]
  - BLISTER [None]
  - BURNS SECOND DEGREE [None]
  - CAUSTIC INJURY [None]
  - INSOMNIA [None]
  - PAIN [None]
  - SCAB [None]
  - SCAR [None]
  - WOUND [None]
